FAERS Safety Report 16145497 (Version 1)
Quarter: 2019Q2

REPORT INFORMATION
  Report Type: Spontaneous
  Country: US (occurrence: US)
  Receive Date: 20190227
  Receipt Date: 20190227
  Transmission Date: 20190711
  Serious: No
  Sender: FDA-Public Use
  Company Number: None

PATIENT
  Age: 55 Year
  Sex: Female

DRUGS (1)
  1. ENBREL [Suspect]
     Active Substance: ETANERCEPT
     Indication: RHEUMATOID ARTHRITIS
     Dates: start: 2019

REACTIONS (6)
  - Cough [None]
  - Cerebrovascular accident [None]
  - Rhinorrhoea [None]
  - Needle issue [None]
  - Sinus headache [None]
  - Therapy cessation [None]

NARRATIVE: CASE EVENT DATE: 20190207
